FAERS Safety Report 15890309 (Version 1)
Quarter: 2019Q1

REPORT INFORMATION
  Report Type: Spontaneous
  Country: US (occurrence: US)
  Receive Date: 20190130
  Receipt Date: 20190130
  Transmission Date: 20190417
  Serious: Yes (Other)
  Sender: FDA-Public Use
  Company Number: US-ABBVIE-19S-163-2641373-00

PATIENT

DRUGS (1)
  1. SYNTHROID [Suspect]
     Active Substance: LEVOTHYROXINE SODIUM
     Indication: PRODUCT USED FOR UNKNOWN INDICATION
     Route: 048

REACTIONS (9)
  - Heart rate decreased [Unknown]
  - Pulse abnormal [Unknown]
  - Chest discomfort [Unknown]
  - Abnormal weight gain [Unknown]
  - Drug effect incomplete [Unknown]
  - Sleep apnoea syndrome [Unknown]
  - Arthropathy [Unknown]
  - Blood thyroid stimulating hormone decreased [Unknown]
  - Muscular weakness [Unknown]
